FAERS Safety Report 6075050-2 (Version None)
Quarter: 2009Q1

REPORT INFORMATION
  Report Type: 
  Country: None (occurrence: None)
  Receive Date: 20090210
  Receipt Date: 20090126
  Transmission Date: 20090719
  Serious: Yes (Death)
  Sender: FDA-Public Use
  Company Number: 013

PATIENT
  Age: 48 Year
  Sex: Male
  Weight: 153.3158 kg

DRUGS (6)
  1. CLOZARIL [Suspect]
     Indication: SCHIZOAFFECTIVE DISORDER
     Dosage: 200 MG QHS PO
     Route: 048
     Dates: start: 20050610, end: 20050619
  2. HALDOL [Concomitant]
  3. LAMISIL CREAM [Concomitant]
  4. COGENTIN [Concomitant]
  5. SEROQUEL [Concomitant]
  6. RISPERDAL [Concomitant]

REACTIONS (15)
  - AGITATION [None]
  - ARRHYTHMIA [None]
  - CARDIOMEGALY [None]
  - GRANULOMA [None]
  - GRANULOMATOUS LIVER DISEASE [None]
  - HYPERTENSIVE HEART DISEASE [None]
  - LEFT VENTRICULAR HYPERTROPHY [None]
  - OBESITY [None]
  - PARANOIA [None]
  - PARATRACHEAL LYMPHADENOPATHY [None]
  - PULMONARY CONGESTION [None]
  - PULMONARY GRANULOMA [None]
  - PULMONARY OEDEMA [None]
  - SPLENIC GRANULOMA [None]
  - VISCERAL CONGESTION [None]
